FAERS Safety Report 5211688-X (Version None)
Quarter: 2007Q1

REPORT INFORMATION
  Report Type: 
  Country: None (occurrence: None)
  Receive Date: 20070116
  Receipt Date: 20061229
  Transmission Date: 20070707
  Serious: Yes (Other)
  Sender: FDA-Public Use
  Company Number: 2006US-05030

PATIENT
  Age: 18 Hour
  Sex: 0

DRUGS (1)
  1. ISOTRETINOIN [Suspect]
     Dosage: 40 MG

REACTIONS (1)
  - SURGERY [None]
